FAERS Safety Report 5502600-4 (Version None)
Quarter: 2007Q4

REPORT INFORMATION
  Report Type: 
  Country: None (occurrence: None)
  Receive Date: 20071031
  Receipt Date: 20071023
  Transmission Date: 20080405
  Serious: Yes (Hospitalization)
  Sender: FDA-Public Use
  Company Number: PHRM2007FR02443

PATIENT
  Age: 23 Year
  Sex: Male

DRUGS (2)
  1. VOLTAREN [Suspect]
     Route: 048
     Dates: start: 20070711, end: 20070718
  2. ACETAMINOPHEN [Suspect]
     Route: 048
     Dates: start: 20070701, end: 20070718

REACTIONS (6)
  - ABDOMINAL PAIN [None]
  - ACUTE ABDOMEN [None]
  - LYMPHADENOPATHY [None]
  - LYMPHOMA [None]
  - PANCREATITIS ACUTE [None]
  - PYREXIA [None]
